FAERS Safety Report 10956439 (Version 1)
Quarter: 2015Q1

REPORT INFORMATION
  Report Type: Spontaneous
  Country: US (occurrence: US)
  Receive Date: 20150326
  Receipt Date: 20150326
  Transmission Date: 20150721
  Serious: No
  Sender: FDA-Public Use
  Company Number: US-ELI_LILLY_AND_COMPANY-US201503000691

PATIENT
  Sex: Male

DRUGS (1)
  1. CYMBALTA [Suspect]
     Active Substance: DULOXETINE HYDROCHLORIDE
     Indication: PRODUCT USED FOR UNKNOWN INDICATION
     Dosage: 120 MG, EACH MORNING
     Route: 065
     Dates: start: 201402

REACTIONS (4)
  - Withdrawal syndrome [Unknown]
  - Formication [Unknown]
  - Feeling abnormal [Unknown]
  - Irritability [Unknown]
